FAERS Safety Report 20494855 (Version 1)
Quarter: 2022Q1

REPORT INFORMATION
  Report Type: Spontaneous
  Country: US (occurrence: US)
  Receive Date: 20220221
  Receipt Date: 20220221
  Transmission Date: 20220423
  Serious: No
  Sender: FDA-Public Use
  Company Number: US-SANOFI-00971192

PATIENT
  Age: 49 Year
  Sex: Male

DRUGS (1)
  1. TOUJEO MAX [Suspect]
     Active Substance: INSULIN GLARGINE
     Indication: Diabetes mellitus
     Dosage: DRUG STRUCTURE DOSAGE : 50 U DRUG INTERVAL DOSAGE : NA DRUG TREATMENT DURATION: SEE NARRATIVE

REACTIONS (1)
  - Product dispensing error [Unknown]
